FAERS Safety Report 12243258 (Version 1)
Quarter: 2016Q2

REPORT INFORMATION
  Report Type: Spontaneous
  Country: US (occurrence: US)
  Receive Date: 20160406
  Receipt Date: 20160406
  Transmission Date: 20160815
  Serious: No
  Sender: FDA-Public Use
  Company Number: US-SA-2015SA134694

PATIENT
  Age: 39 Year
  Sex: Female

DRUGS (1)
  1. ALLEGRA-D 24 HOUR [Suspect]
     Active Substance: FEXOFENADINE HYDROCHLORIDE\PSEUDOEPHEDRINE HYDROCHLORIDE
     Indication: SINUS CONGESTION
     Dosage: TOOK DOSE AND DAILY DOSE:  OF FEXOFENADINE HCL 180MG AND PSEUDOEPHEDRINE 240MG DAILY
     Route: 048
     Dates: start: 20150723, end: 20150728

REACTIONS (4)
  - Drug ineffective [Unknown]
  - Heart rate increased [Recovered/Resolved]
  - Insomnia [Recovered/Resolved]
  - Feeling abnormal [Recovered/Resolved]
